FAERS Safety Report 4501437-2 (Version None)
Quarter: 2004Q4

REPORT INFORMATION
  Report Type: 
  Country: None (occurrence: None)
  Receive Date: 20041110
  Receipt Date: 20041101
  Transmission Date: 20050328
  Serious: Yes (Other)
  Sender: FDA-Public Use
  Company Number: 97-01-0269

PATIENT
  Age: 58 Year
  Sex: Female

DRUGS (3)
  1. INTRON A [Suspect]
     Indication: MALIGNANT MELANOMA
     Dosage: 33-16 MIU ; 33 MIUIV5D/WK; 16 MIU SC
     Dates: start: 19960903, end: 19960930
  2. INTRON A [Suspect]
     Indication: MALIGNANT MELANOMA
     Dosage: 33-16 MIU ; 33 MIUIV5D/WK; 16 MIU SC
     Dates: start: 19960903, end: 19961001
  3. INTRON A [Suspect]
     Indication: MALIGNANT MELANOMA
     Dosage: 33-16 MIU ; 33 MIUIV5D/WK; 16 MIU SC
     Dates: start: 19961002, end: 19961001

REACTIONS (15)
  - ARTHRALGIA [None]
  - ASTHENIA [None]
  - DERMATOMYOSITIS [None]
  - FATIGUE [None]
  - INFLAMMATION [None]
  - INTERSTITIAL LUNG DISEASE [None]
  - MUSCLE NECROSIS [None]
  - MUSCULOSKELETAL STIFFNESS [None]
  - MYALGIA [None]
  - OEDEMA PERIPHERAL [None]
  - POLYARTHRITIS [None]
  - POLYMYOSITIS [None]
  - RALES [None]
  - SKIN DISCOLOURATION [None]
  - SYNOVIAL DISORDER [None]
